FAERS Safety Report 17110942 (Version 1)
Quarter: 2019Q4

REPORT INFORMATION
  Report Type: Report from Study
  Country: ZA (occurrence: ZA)
  Receive Date: 20191204
  Receipt Date: 20191204
  Transmission Date: 20200122
  Serious: Yes (Other)
  Sender: FDA-Public Use
  Company Number: PHHY2016ZA050212

PATIENT
  Age: 27 Year
  Sex: Female

DRUGS (5)
  1. URBANOL [Concomitant]
     Active Substance: CLOBAZAM
     Indication: STRESS
     Route: 065
  2. TREPILINE [Concomitant]
     Active Substance: AMITRIPTYLINE
     Indication: INSOMNIA
     Dosage: UNK
     Route: 065
  3. TUVIGIN [Suspect]
     Active Substance: FINGOLIMOD HYDROCHLORIDE
     Indication: MULTIPLE SCLEROSIS
  4. TUVIGIN [Suspect]
     Active Substance: FINGOLIMOD HYDROCHLORIDE
     Indication: RELAPSING-REMITTING MULTIPLE SCLEROSIS
     Dosage: 0.5 MG, QD
     Route: 048
     Dates: start: 201601
  5. QLAIRA [Concomitant]
     Active Substance: DIENOGEST\ESTRADIOL VALERATE
     Indication: CONTRACEPTION
     Dosage: 1 DF, QD
     Route: 065

REACTIONS (18)
  - Lymphopenia [Unknown]
  - Heart rate irregular [Recovered/Resolved]
  - Micturition urgency [Not Recovered/Not Resolved]
  - Nausea [Recovering/Resolving]
  - Chest pain [Recovering/Resolving]
  - Gait disturbance [Recovering/Resolving]
  - Respiratory tract infection [Unknown]
  - Pharyngeal erythema [Unknown]
  - Expanded disability status scale score increased [Recovering/Resolving]
  - Vestibular neuronitis [Unknown]
  - Malaise [Unknown]
  - Blood pressure fluctuation [Recovered/Resolved]
  - Pain [Unknown]
  - Neck pain [Unknown]
  - Vomiting [Recovering/Resolving]
  - White blood cell count decreased [Unknown]
  - Blood pressure increased [Recovering/Resolving]
  - Dizziness postural [Recovering/Resolving]

NARRATIVE: CASE EVENT DATE: 20160411
